FAERS Safety Report 6579392-3 (Version None)
Quarter: 2010Q1

REPORT INFORMATION
  Report Type: 
  Country: None (occurrence: None)
  Receive Date: 20100212
  Receipt Date: 20091109
  Transmission Date: 20100710
  Serious: Yes (Hospitalization)
  Sender: FDA-Public Use
  Company Number: JP-SANOFI-AVENTIS-2009SA002504

PATIENT
  Sex: Male
  Weight: 72 kg

DRUGS (10)
  1. PLAVIX [Suspect]
     Indication: ANGINA UNSTABLE
     Dosage: LOADING DOSE
     Route: 048
     Dates: start: 20080915, end: 20080915
  2. PLAVIX [Suspect]
     Route: 048
     Dates: start: 20080916
  3. ASPIRIN [Concomitant]
     Indication: ANGINA UNSTABLE
     Route: 048
     Dates: start: 20080905
  4. FRANDOL [Concomitant]
     Indication: ANGINA UNSTABLE
     Route: 062
     Dates: start: 20080905
  5. RADEN [Concomitant]
     Route: 048
  6. AMARYL [Concomitant]
     Route: 048
  7. GLUCOBAY [Concomitant]
     Route: 048
  8. KINEDAK [Concomitant]
     Route: 048
  9. ATORVASTATIN CALCIUM [Concomitant]
     Route: 048
     Dates: start: 20081120
  10. ZETIA [Concomitant]
     Route: 048
     Dates: start: 20090319

REACTIONS (1)
  - IN-STENT CORONARY ARTERY RESTENOSIS [None]
